FAERS Safety Report 17376441 (Version 28)
Quarter: 2024Q4

REPORT INFORMATION
  Report Type: Report from Study
  Country: DE (occurrence: DE)
  Receive Date: 20200206
  Receipt Date: 20241205
  Transmission Date: 20250115
  Serious: Yes (Hospitalization, Other)
  Sender: ROCHE
  Company Number: DE-ROCHE-2215494

PATIENT
  Age: 35 Year
  Sex: Female

DRUGS (20)
  1. OCREVUS [Suspect]
     Active Substance: OCRELIZUMAB
     Indication: Secondary progressive multiple sclerosis
     Dosage: 600 MG FOR EVERY 182 DAYS. ?LAST GIVEN OCRELIZUMAB INFUSION WAS APPLIED IN /MAR/2020.?600 MG ONCE IN
     Route: 042
     Dates: start: 20181112, end: 20181126
  2. OCREVUS [Suspect]
     Active Substance: OCRELIZUMAB
     Dosage: SUBSEQUENT DOSES OF OCRELIZUMAB: /MAR/2020, 07/OCT/2020
     Route: 042
     Dates: start: 20190523
  3. GABAPENTIN [Concomitant]
     Active Substance: GABAPENTIN
     Dosage: 1-1-1-1
  4. CITALOPRAM [Concomitant]
     Active Substance: CITALOPRAM
     Dosage: 1-0-0
  5. HYDROMORPHONE [Concomitant]
     Active Substance: HYDROMORPHONE
     Dosage: 1-0-0
     Route: 048
  6. HYDROMORPHONE [Concomitant]
     Active Substance: HYDROMORPHONE
     Route: 048
  7. HYDROMORPHONE [Concomitant]
     Active Substance: HYDROMORPHONE
     Dosage: 1-0-0
     Route: 048
  8. HYDROMORPHONE [Concomitant]
     Active Substance: HYDROMORPHONE
     Dosage: 32MG - 16MG - 32MG - 16MG
     Route: 048
  9. PANTOPRAZOLE [Concomitant]
     Active Substance: PANTOPRAZOLE
     Dosage: 1-0-1
  10. TRIMIPRAMINE [Concomitant]
     Active Substance: TRIMIPRAMINE
     Dosage: 0-0-1
  11. ZOPICLONE [Concomitant]
     Active Substance: ZOPICLONE
     Dosage: 0-0-2 AT NIGHT
  12. ZOPICLONE [Concomitant]
     Active Substance: ZOPICLONE
  13. SIMVASTATIN [Concomitant]
     Active Substance: SIMVASTATIN
     Dosage: 0-0-1
  14. LEVOTHYROXINE SODIUM [Concomitant]
     Active Substance: LEVOTHYROXINE SODIUM
  15. IBUPROFEN [Concomitant]
     Active Substance: IBUPROFEN
  16. HUMALOG [Concomitant]
     Active Substance: INSULIN LISPRO
     Dosage: BY VALUE AT MEALTIME
  17. LANTUS [Concomitant]
     Active Substance: INSULIN GLARGINE
     Dosage: 36 IU - 0 - 42 IU
  18. DOMINAL (GERMANY) [Concomitant]
  19. NABIXIMOLS [Concomitant]
     Active Substance: NABIXIMOLS
  20. NITROFURANTOIN [Concomitant]
     Active Substance: NITROFURANTOIN

REACTIONS (34)
  - Off label use [Unknown]
  - Fatigue [Recovered/Resolved]
  - Headache [Recovered/Resolved]
  - Blood glucose increased [Recovered/Resolved]
  - Back pain [Recovered/Resolved]
  - Abdominal pain upper [Not Recovered/Not Resolved]
  - Abdominal discomfort [Not Recovered/Not Resolved]
  - Nasopharyngitis [Recovered/Resolved]
  - Pneumonia [Recovered/Resolved]
  - Fall [Unknown]
  - Haematoma [Recovered/Resolved]
  - Face injury [Not Recovered/Not Resolved]
  - Pain in extremity [Recovered/Resolved]
  - Inflammation [Recovered/Resolved]
  - Liver function test increased [Unknown]
  - Blister [Recovered/Resolved]
  - Pyrexia [Recovered/Resolved]
  - Pleurisy [Recovered/Resolved]
  - Renal disorder [Not Recovered/Not Resolved]
  - Pelvic inflammatory disease [Not Recovered/Not Resolved]
  - Urinary tract infection [Unknown]
  - Bladder disorder [Unknown]
  - Foot fracture [Recovered/Resolved]
  - Hand fracture [Recovered/Resolved]
  - Hypoglycaemia [Recovered/Resolved]
  - Upper limb fracture [Recovered/Resolved]
  - Rib fracture [Recovered/Resolved]
  - Decubitus ulcer [Recovered/Resolved]
  - Abdominal pain lower [Recovered/Resolved]
  - Pyelonephritis chronic [Recovered/Resolved]
  - Fibula fracture [Recovered/Resolved]
  - Ankle fracture [Recovered/Resolved]
  - Jaw fracture [Not Recovered/Not Resolved]
  - Pain [Not Recovered/Not Resolved]

NARRATIVE: CASE EVENT DATE: 20181112
